FAERS Safety Report 18588382 (Version 6)
Quarter: 2021Q3

REPORT INFORMATION
  Report Type: Report from Study
  Country: None (occurrence: US)
  Receive Date: 20201208
  Receipt Date: 20210727
  Transmission Date: 20211014
  Serious: Yes (Other)
  Sender: FDA-Public Use
  Company Number: US-ABBVIE-20K-163-3677302-00

PATIENT
  Age: 84 Year
  Sex: Female
  Weight: 52.21 kg

DRUGS (20)
  1. VENCLEXTA [Suspect]
     Active Substance: VENETOCLAX
     Dosage: WEEK 4, 200 MG DAILY
     Route: 048
  2. CALCIUM D [Concomitant]
     Active Substance: CALCIUM\VITAMIN D
     Indication: PRODUCT USED FOR UNKNOWN INDICATION
     Route: 048
  3. ZOVIRAX [Concomitant]
     Active Substance: ACYCLOVIR
     Indication: PRODUCT USED FOR UNKNOWN INDICATION
     Dosage: TAKE 1 TABLET (400 MG TOTAL) BY MOUTH 2 TIMES DAILY
     Route: 048
  4. LASIX [Concomitant]
     Active Substance: FUROSEMIDE
     Indication: PRODUCT USED FOR UNKNOWN INDICATION
     Dosage: TAKE 1 TABLET (40 MG TOTAL) BY MOUTH DAILY
     Route: 048
  5. PRILOSEC [Concomitant]
     Active Substance: OMEPRAZOLE MAGNESIUM
     Indication: PRODUCT USED FOR UNKNOWN INDICATION
     Dosage: TAKE 1 CAPSULE (20 MG TOTAL) BY MOUTH DAILY
     Route: 048
  6. VENCLEXTA [Suspect]
     Active Substance: VENETOCLAX
     Indication: PLASMA CELL MYELOMA
     Dosage: WEEK 2, 50 MG DAILY
     Route: 048
  7. ASPIRIN. [Concomitant]
     Active Substance: ASPIRIN
     Indication: PRODUCT USED FOR UNKNOWN INDICATION
     Dosage: TAKE 81 MG TABLET BY MOUTH DAILY
     Route: 048
  8. FISH OIL [Concomitant]
     Active Substance: FISH OIL
     Indication: PRODUCT USED FOR UNKNOWN INDICATION
     Dosage: TAKE 1000 MG CAPSULE BY MOUTH DAILY
     Route: 048
  9. KLOR?CON M10 [Concomitant]
     Active Substance: POTASSIUM CHLORIDE
     Indication: PRODUCT USED FOR UNKNOWN INDICATION
     Dosage: TAKE 1 TABLET (20 MEQ TOTAL) BY MOUTH DAILY
     Route: 048
  10. VENCLEXTA [Suspect]
     Active Substance: VENETOCLAX
     Indication: PRIMARY AMYLOIDOSIS
     Dosage: WEEK 1, 20 MG DAILY
     Route: 048
  11. VENCLEXTA [Suspect]
     Active Substance: VENETOCLAX
     Dosage: WEEK 3, 100 MG DAILY
     Route: 048
  12. REVLIMID [Concomitant]
     Active Substance: LENALIDOMIDE
     Indication: PRODUCT USED FOR UNKNOWN INDICATION
     Dosage: TAKE 1 CAPSULE (10 MG TOTAL) BY MOUTH DAILY FOR 21 DAYS, 21 DAYS THEN 7 DAYS OFF
     Route: 048
  13. ALDACTONE [Concomitant]
     Active Substance: SPIRONOLACTONE
     Indication: PRODUCT USED FOR UNKNOWN INDICATION
     Dosage: TAKE 0.5 TABLETS (12.5 MG TOTAL) BY MOUTH DAILY
     Route: 048
  14. VENCLEXTA [Suspect]
     Active Substance: VENETOCLAX
     Dosage: WEEK 5, TAKE 4 TABLET(S) BY MOUTH EVERY DAY
     Route: 048
     Dates: start: 202007
  15. VENCLEXTA [Suspect]
     Active Substance: VENETOCLAX
     Route: 048
  16. VITAMIN D [Concomitant]
     Active Substance: VITAMIN D NOS
     Indication: PRODUCT USED FOR UNKNOWN INDICATION
     Dosage: TAKE 1 CAPSULE BY MOUTH DAILY
     Route: 048
  17. TYLENOL [Concomitant]
     Active Substance: ACETAMINOPHEN
     Indication: PRODUCT USED FOR UNKNOWN INDICATION
     Dosage: TAKE 500 MG TABLET BY MOUTH EVERY 4 HOURS, AS NEEDED
     Route: 048
  18. LEVOXYL [Concomitant]
     Active Substance: LEVOTHYROXINE SODIUM
     Indication: PRODUCT USED FOR UNKNOWN INDICATION
     Dosage: TAKE 50 MCG TABLET BY MOUTH EVERY MORNING BEFORE BREAKFAST
     Route: 048
  19. SYNTHROID [Concomitant]
     Active Substance: LEVOTHYROXINE SODIUM
     Indication: PRODUCT USED FOR UNKNOWN INDICATION
     Dosage: TAKE 50 MCG TABLET BY MOUTH EVERY MORNING BEFORE BREAKFAST
     Route: 048
  20. VENCLEXTA [Suspect]
     Active Substance: VENETOCLAX
     Dosage: TAKE 4 TABLET(S) BY MOUTH EVERY DAY
     Route: 048

REACTIONS (12)
  - Neuropathy peripheral [Unknown]
  - Therapeutic response unexpected [Unknown]
  - Renal disorder [Recovering/Resolving]
  - Diarrhoea [Recovering/Resolving]
  - Memory impairment [Unknown]
  - Pain in extremity [Recovering/Resolving]
  - Femur fracture [Recovering/Resolving]
  - Dizziness [Unknown]
  - Miliaria [Unknown]
  - Fall [Recovered/Resolved]
  - Off label use [Unknown]
  - Pre-existing condition improved [Unknown]

NARRATIVE: CASE EVENT DATE: 20200718
